FAERS Safety Report 16357108 (Version 1)
Quarter: 2019Q2

REPORT INFORMATION
  Report Type: Spontaneous
  Country: US (occurrence: US)
  Receive Date: 20190418
  Receipt Date: 20190418
  Transmission Date: 20190711
  Serious: Yes (Death, Hospitalization)
  Sender: FDA-Public Use
  Company Number: None

PATIENT
  Sex: Male
  Weight: 112.04 kg

DRUGS (11)
  1. VITAMIN D3 [Concomitant]
     Active Substance: CHOLECALCIFEROL
  2. ESOMEPRAZOLE. [Concomitant]
     Active Substance: ESOMEPRAZOLE MAGNESIUM
  3. ONDANSETRON [Concomitant]
     Active Substance: ONDANSETRON
  4. ATORVASTATIN [Concomitant]
     Active Substance: ATORVASTATIN
  5. XARELTO [Concomitant]
     Active Substance: RIVAROXABAN
  6. CHLORTHALIDONE. [Concomitant]
     Active Substance: CHLORTHALIDONE
  7. HYDROCODONE [Concomitant]
     Active Substance: HYDROCODONE
  8. LISINOPRIL. [Concomitant]
     Active Substance: LISINOPRIL
  9. METOPROLOL. [Concomitant]
     Active Substance: METOPROLOL
  10. CAPECITABINE 500MG TABLETS [Suspect]
     Active Substance: CAPECITABINE
     Indication: COLON CANCER
     Dosage: ?          QUANTITY:3 DF DOSAGE FORM;?
     Route: 048
     Dates: start: 20180821, end: 20190227
  11. AMLODIPINE BESYLATE. [Concomitant]
     Active Substance: AMLODIPINE BESYLATE

REACTIONS (2)
  - Hepatic failure [None]
  - Renal failure [None]
